FAERS Safety Report 17566257 (Version 1)
Quarter: 2020Q1

REPORT INFORMATION
  Report Type: Spontaneous
  Country: FR (occurrence: FR)
  Receive Date: 20200320
  Receipt Date: 20200320
  Transmission Date: 20200409
  Serious: Yes (Hospitalization, Other)
  Sender: FDA-Public Use
  Company Number: FR-MYLANLABS-2020M1028744

PATIENT
  Age: 66 Year
  Sex: Male

DRUGS (4)
  1. CEFTRIAXONE. [Concomitant]
     Active Substance: CEFTRIAXONE
     Indication: ENCEPHALITIS
     Dosage: 3 GRAM, BID(3 G EVERY 12 HOURS)
  2. ACICLOVIR [Concomitant]
     Active Substance: ACYCLOVIR
     Indication: ENCEPHALITIS
     Dosage: 1 GRAM, TID(1 G EVERY 8 H)
  3. AMOXICILLIN. [Concomitant]
     Active Substance: AMOXICILLIN
     Indication: ENCEPHALITIS
     Dosage: 4 GRAM, Q6H(4 G EVERY 6 HOURS)
  4. DOXYCYCLINE. [Suspect]
     Active Substance: DOXYCYCLINE
     Indication: ENCEPHALITIS RICKETTSIAL
     Dosage: 300 MILLIGRAM, QD(300 MG DAILY)
     Route: 048

REACTIONS (3)
  - Vasculitis [Recovered/Resolved]
  - Prescribed overdose [Unknown]
  - Off label use [Unknown]
